FAERS Safety Report 5919230-2 (Version None)
Quarter: 2008Q4

REPORT INFORMATION
  Report Type: 
  Country: None (occurrence: None)
  Receive Date: 20081014
  Receipt Date: 20081014
  Transmission Date: 20090506
  Serious: Yes (Life-Threatening)
  Sender: FDA-Public Use
  Company Number: None

PATIENT
  Age: 46 Year
  Sex: Female

DRUGS (1)
  1. AMOXICILLIN [Suspect]
     Indication: PHARYNGITIS
     Dosage: ONLY TOOK FIRST DOSE
     Dates: start: 20081009, end: 20081009

REACTIONS (2)
  - BLOOD PRESSURE DECREASED [None]
  - HYPERSENSITIVITY [None]
